FAERS Safety Report 23271155 (Version 1)
Quarter: 2023Q4

REPORT INFORMATION
  Report Type: Spontaneous
  Country: US (occurrence: None)
  Receive Date: 20231207
  Receipt Date: 20231207
  Transmission Date: 20240110
  Serious: No
  Sender: FDA-Public Use
  Company Number: 2023A265258

PATIENT
  Age: 69 Year

DRUGS (2)
  1. FASENRA [Suspect]
     Active Substance: BENRALIZUMAB
     Indication: Asthma
     Dosage: 30MG/ML EVERY EIGHT WEEKS
     Route: 058
     Dates: start: 20230801
  2. SYMBICORT [Suspect]
     Active Substance: BUDESONIDE\FORMOTEROL FUMARATE DIHYDRATE
     Indication: Asthma
     Dosage: UNKNOWN,TWO TIMES A DAY
     Route: 055
     Dates: start: 20230801

REACTIONS (6)
  - Injection site erythema [Unknown]
  - Injection site pain [Unknown]
  - Injection site pain [Unknown]
  - Injection site haemorrhage [Unknown]
  - Injection site discharge [Unknown]
  - Incorrect dose administered by device [Unknown]

NARRATIVE: CASE EVENT DATE: 20231021
